FAERS Safety Report 6119186-6 (Version None)
Quarter: 2009Q1

REPORT INFORMATION
  Report Type: 
  Country: None (occurrence: None)
  Receive Date: 20090316
  Receipt Date: 20090302
  Transmission Date: 20090719
  Serious: Yes (Life-Threatening, Hospitalization, Other)
  Sender: FDA-Public Use
  Company Number: AU-PFIZER INC-2009177959

PATIENT

DRUGS (4)
  1. HYDROXYCHLOROQUINE SULFATE [Suspect]
     Dosage: UNK
  2. PARACETAMOL [Suspect]
     Dosage: UNK
  3. CELECOXIB [Suspect]
     Dosage: UNK
  4. CLARITHROMYCIN [Suspect]
     Dosage: UNK

REACTIONS (5)
  - CIRCULATORY COLLAPSE [None]
  - HYPOKALAEMIA [None]
  - HYPOTHERMIA [None]
  - OVERDOSE [None]
  - PULSE ABSENT [None]
